FAERS Safety Report 19247749 (Version 3)
Quarter: 2021Q2

REPORT INFORMATION
  Report Type: Report from Study
  Country: US (occurrence: US)
  Receive Date: 20210512
  Receipt Date: 20210531
  Transmission Date: 20210717
  Serious: Yes (Death, Hospitalization, Other)
  Sender: FDA-Public Use
  Company Number: NVSC2021US096978

PATIENT
  Sex: Female

DRUGS (1)
  1. PIQRAY [Suspect]
     Active Substance: ALPELISIB
     Indication: BREAST CANCER
     Dosage: 250 MG, QD (TABLET)
     Route: 048
     Dates: start: 20210402

REACTIONS (5)
  - Adverse event [Unknown]
  - Illness [Unknown]
  - Hyperglycaemia [Unknown]
  - Intestinal perforation [Fatal]
  - Heart rate increased [Unknown]
